FAERS Safety Report 5202181-9 (Version None)
Quarter: 2007Q1

REPORT INFORMATION
  Report Type: 
  Country: None (occurrence: None)
  Receive Date: 20070109
  Receipt Date: 20070102
  Transmission Date: 20070707
  Serious: Yes (Disabling, Other)
  Sender: FDA-Public Use
  Company Number: 10812303

PATIENT
  Age: 46 Year
  Sex: Female

DRUGS (3)
  1. ADCORTYL TAB [Suspect]
     Indication: INTERVERTEBRAL DISC PROTRUSION
     Route: 008
     Dates: start: 19990101, end: 19990201
  2. ADCORTYL TAB [Suspect]
     Indication: ANAESTHESIA
     Route: 008
     Dates: start: 19990101, end: 19990201
  3. PROCAINE HCL [Concomitant]

REACTIONS (10)
  - ANORECTAL DISORDER [None]
  - ARACHNOIDITIS [None]
  - BACK PAIN [None]
  - CATARACT [None]
  - COLITIS [None]
  - GASTROINTESTINAL MOTILITY DISORDER [None]
  - GRANULOMA [None]
  - NERVE INJURY [None]
  - POLYP [None]
  - PROCTALGIA FUGAX [None]
